FAERS Safety Report 9574758 (Version 2)
Quarter: 2013Q4

REPORT INFORMATION
  Report Type: Spontaneous
  Country: DE (occurrence: DE)
  Receive Date: 20131001
  Receipt Date: 20131001
  Transmission Date: 20140711
  Serious: Yes (Hospitalization)
  Sender: FDA-Public Use
  Company Number: DE-JNJFOC-20030604664

PATIENT
  Age: 23 Year
  Sex: Female

DRUGS (32)
  1. HALDOL-JANSSEN [Suspect]
     Indication: SCHIZOPHRENIA, PARANOID TYPE
     Route: 048
     Dates: start: 20030329
  2. HALDOL-JANSSEN [Suspect]
     Indication: SCHIZOPHRENIA, PARANOID TYPE
     Route: 048
     Dates: start: 20030303, end: 20030321
  3. HALDOL-JANSSEN [Suspect]
     Indication: SCHIZOPHRENIA, PARANOID TYPE
     Route: 048
     Dates: start: 20030322, end: 20030324
  4. HALDOL-JANSSEN [Suspect]
     Indication: SCHIZOPHRENIA, PARANOID TYPE
     Route: 048
     Dates: start: 20030325, end: 20030326
  5. HALDOL-JANSSEN [Suspect]
     Indication: SCHIZOPHRENIA, PARANOID TYPE
     Route: 048
     Dates: start: 20030415, end: 20030417
  6. HALDOL-JANSSEN [Suspect]
     Indication: SCHIZOPHRENIA, PARANOID TYPE
     Route: 048
     Dates: start: 20030418
  7. HALDOL-JANSSEN [Suspect]
     Indication: SCHIZOPHRENIA, PARANOID TYPE
     Route: 048
     Dates: start: 20030330
  8. HALDOL-JANSSEN [Suspect]
     Indication: SCHIZOPHRENIA, PARANOID TYPE
     Route: 048
     Dates: start: 20030327
  9. HALDOL-JANSSEN [Suspect]
     Indication: SCHIZOPHRENIA, PARANOID TYPE
     Route: 048
     Dates: start: 20030328
  10. RISPERDAL [Suspect]
     Indication: SCHIZOPHRENIA, PARANOID TYPE
     Route: 048
     Dates: start: 20030307, end: 20030314
  11. RISPERDAL [Suspect]
     Indication: SCHIZOPHRENIA, PARANOID TYPE
     Route: 048
     Dates: start: 20030320
  12. RISPERDAL [Suspect]
     Indication: SCHIZOPHRENIA, PARANOID TYPE
     Route: 048
     Dates: start: 20030319
  13. RISPERDAL [Suspect]
     Indication: SCHIZOPHRENIA, PARANOID TYPE
     Route: 048
     Dates: start: 20030306
  14. RISPERDAL [Suspect]
     Indication: SCHIZOPHRENIA, PARANOID TYPE
     Route: 048
     Dates: start: 20030301, end: 20030305
  15. RISPERDAL [Suspect]
     Indication: SCHIZOPHRENIA, PARANOID TYPE
     Route: 048
     Dates: start: 20030217, end: 20030228
  16. RISPERDAL [Suspect]
     Indication: SCHIZOPHRENIA, PARANOID TYPE
     Route: 048
     Dates: start: 20030315, end: 20030318
  17. SEROQUEL [Suspect]
     Indication: PRODUCT USED FOR UNKNOWN INDICATION
     Route: 048
     Dates: start: 20030319
  18. SEROQUEL [Suspect]
     Indication: PRODUCT USED FOR UNKNOWN INDICATION
     Route: 048
     Dates: start: 20030328
  19. SEROQUEL [Suspect]
     Indication: PRODUCT USED FOR UNKNOWN INDICATION
     Route: 048
     Dates: start: 20030318
  20. SEROQUEL [Suspect]
     Indication: PRODUCT USED FOR UNKNOWN INDICATION
     Route: 048
     Dates: start: 20030317
  21. SEROQUEL [Suspect]
     Indication: PRODUCT USED FOR UNKNOWN INDICATION
     Route: 048
     Dates: start: 20030313
  22. SEROQUEL [Suspect]
     Indication: PRODUCT USED FOR UNKNOWN INDICATION
     Route: 048
     Dates: start: 20030314, end: 20130316
  23. SEROQUEL [Suspect]
     Indication: PRODUCT USED FOR UNKNOWN INDICATION
     Route: 048
     Dates: start: 20030320, end: 20030327
  24. SEROQUEL [Suspect]
     Indication: PRODUCT USED FOR UNKNOWN INDICATION
     Route: 048
     Dates: start: 20030329
  25. AKINETON [Concomitant]
     Route: 048
     Dates: start: 20030308
  26. TAXILAN [Concomitant]
     Route: 048
     Dates: start: 20030304, end: 20030319
  27. DIAZEPAM [Concomitant]
     Route: 048
     Dates: start: 20030301, end: 20030302
  28. DIAZEPAM [Concomitant]
     Route: 048
     Dates: start: 20030304, end: 20030306
  29. DIAZEPAM [Concomitant]
     Route: 048
     Dates: start: 20030308, end: 20030320
  30. DIAZEPAM [Concomitant]
     Route: 048
     Dates: start: 20030303
  31. DIAZEPAM [Concomitant]
     Route: 048
     Dates: start: 20030307
  32. DIAZEPAM [Concomitant]
     Route: 048
     Dates: start: 20030321

REACTIONS (2)
  - Weight increased [Not Recovered/Not Resolved]
  - Hyperprolactinaemia [Unknown]
